FAERS Safety Report 13468499 (Version 1)
Quarter: 2017Q2

REPORT INFORMATION
  Report Type: Spontaneous
  Country: US (occurrence: US)
  Receive Date: 20170421
  Receipt Date: 20170421
  Transmission Date: 20170830
  Serious: Yes (Hospitalization, Other)
  Sender: FDA-Public Use
  Company Number: US-ELI_LILLY_AND_COMPANY-US201704005729

PATIENT
  Sex: Male

DRUGS (3)
  1. HUMULIN R [Suspect]
     Active Substance: INSULIN HUMAN
     Dosage: 70 U, OTHER
     Route: 058
     Dates: start: 201704
  2. HUMULIN R [Suspect]
     Active Substance: INSULIN HUMAN
     Indication: DIABETES MELLITUS
     Dosage: 125 U, EACH MORNING
     Route: 058
     Dates: start: 2015, end: 20170208
  3. HUMULIN R [Suspect]
     Active Substance: INSULIN HUMAN
     Dosage: 100 U, EACH EVENING
     Route: 058
     Dates: start: 2015, end: 20170208

REACTIONS (4)
  - Incorrect drug administration duration [Unknown]
  - Thrombosis [Recovered/Resolved]
  - Incorrect dose administered [Recovered/Resolved]
  - Coronary artery occlusion [Recovering/Resolving]
